FAERS Safety Report 4511609-9 (Version None)
Quarter: 2004Q4

REPORT INFORMATION
  Report Type: 
  Country: None (occurrence: None)
  Receive Date: 20041129
  Receipt Date: 20041014
  Transmission Date: 20050328
  Serious: Yes (Hospitalization)
  Sender: FDA-Public Use
  Company Number: US-BRISTOL-MYERS SQUIBB COMPANY-12733150

PATIENT
  Age: 60 Year
  Sex: Female
  Weight: 68 kg

DRUGS (2)
  1. ABILIFY [Suspect]
     Dosage: INITIATED 5 MG/DAY APR-04, INC TO 10 MG/DAY APR-04, INC TO 15 MG/DAY ON 05-OCT-04.
     Route: 048
     Dates: start: 20040401, end: 20041014
  2. TRAZODONE HCL [Concomitant]

REACTIONS (1)
  - PANCREATITIS ACUTE [None]
